FAERS Safety Report 6084084-3 (Version None)
Quarter: 2009Q1

REPORT INFORMATION
  Report Type: 
  Country: None (occurrence: None)
  Receive Date: 20090217
  Receipt Date: 20090217
  Transmission Date: 20090719
  Serious: Yes (Hospitalization)
  Sender: FDA-Public Use
  Company Number: None

PATIENT
  Age: 58 Year
  Sex: Female
  Weight: 79.8331 kg

DRUGS (2)
  1. SIMVASTATIN [Suspect]
     Indication: BLOOD CHOLESTEROL INCREASED
     Dosage: ONE A DAY ONE ENDOTRACHEAL
     Route: 007
     Dates: start: 20080110, end: 20090208
  2. GEMFIBROZIL [Suspect]
     Indication: BLOOD CHOLESTEROL INCREASED
     Dosage: TWO A DAY TWICE ENDOTRACHEAL
     Route: 007
     Dates: start: 20080110, end: 20090208

REACTIONS (8)
  - ABASIA [None]
  - CARDIAC ENZYMES INCREASED [None]
  - ECONOMIC PROBLEM [None]
  - HEPATIC ENZYME ABNORMAL [None]
  - IMPAIRED WORK ABILITY [None]
  - MYALGIA [None]
  - PAIN [None]
  - RENAL IMPAIRMENT [None]
